FAERS Safety Report 11688508 (Version 1)
Quarter: 2015Q4

REPORT INFORMATION
  Report Type: Spontaneous
  Country: HU (occurrence: HU)
  Receive Date: 20151101
  Receipt Date: 20151101
  Transmission Date: 20160304
  Serious: Yes (Hospitalization)
  Sender: FDA-Public Use
  Company Number: HU-HOSPIRA-3054961

PATIENT
  Age: 38 Year
  Sex: Female

DRUGS (4)
  1. EPIRUBICIN [Suspect]
     Active Substance: EPIRUBICIN
     Indication: INVASIVE DUCTAL BREAST CARCINOMA
     Dates: start: 20120522, end: 20130219
  2. DOXIFLURIDINE [Suspect]
     Active Substance: DOXIFLURIDINE
     Indication: INVASIVE DUCTAL BREAST CARCINOMA
     Dates: start: 20120522, end: 20130219
  3. ZOLEDRONIC ACID [Concomitant]
     Active Substance: ZOLEDRONIC ACID
     Indication: INVASIVE DUCTAL BREAST CARCINOMA
     Route: 042
  4. DOCETAXEL. [Suspect]
     Active Substance: DOCETAXEL
     Indication: INVASIVE DUCTAL BREAST CARCINOMA
     Dates: start: 20120522, end: 20130219

REACTIONS (2)
  - Pyrexia [Unknown]
  - Agranulocytosis [Unknown]
